FAERS Safety Report 11114152 (Version 4)
Quarter: 2015Q2

REPORT INFORMATION
  Report Type: Report from Study
  Country: BR (occurrence: BR)
  Receive Date: 20150514
  Receipt Date: 20150601
  Transmission Date: 20150821
  Serious: Yes (Other)
  Sender: FDA-Public Use
  Company Number: PHHY2015BR056299

PATIENT
  Age: 65 Year
  Sex: Female

DRUGS (4)
  1. EXJADE [Suspect]
     Active Substance: DEFERASIROX
     Dosage: 1 DF OF 500 MG, QD (AT 6 AM)
     Route: 065
  2. EXJADE [Suspect]
     Active Substance: DEFERASIROX
     Indication: APLASTIC ANAEMIA
     Dosage: 2 DF OF 500 MG, QD
     Route: 065
  3. FENOBARBITAL [Concomitant]
     Active Substance: PHENOBARBITAL
     Indication: CONVULSION PROPHYLAXIS
     Dosage: 0.5 DF, QD
     Route: 048
  4. DANAZOL. [Concomitant]
     Active Substance: DANAZOL
     Indication: PLATELET DISORDER
     Dosage: 4 DF, QD
     Route: 048

REACTIONS (4)
  - Seizure [Recovered/Resolved]
  - Hypertension [Recovered/Resolved]
  - Hypertension [Recovered/Resolved]
  - Platelet count decreased [Unknown]

NARRATIVE: CASE EVENT DATE: 201505
